FAERS Safety Report 24073129 (Version 1)
Quarter: 2024Q3

REPORT INFORMATION
  Report Type: Spontaneous
  Country: GB (occurrence: GB)
  Receive Date: 20240710
  Receipt Date: 20240710
  Transmission Date: 20241017
  Serious: Yes (Other)
  Sender: MYLAN
  Company Number: None

PATIENT
  Age: 3 Year
  Sex: Female
  Weight: 17 kg

DRUGS (1)
  1. ROCURONIUM [Suspect]
     Active Substance: ROCURONIUM BROMIDE
     Indication: General anaesthesia
     Dosage: UNK
     Route: 065
     Dates: start: 20240511, end: 20240511

REACTIONS (3)
  - Wheezing [Recovered/Resolved]
  - Hypotension [Recovered/Resolved]
  - Airway peak pressure [Recovered/Resolved]

NARRATIVE: CASE EVENT DATE: 20240511
